FAERS Safety Report 10171534 (Version 1)
Quarter: 2014Q2

REPORT INFORMATION
  Report Type: Spontaneous
  Country: US (occurrence: None)
  Receive Date: 20140428
  Receipt Date: 20140428
  Transmission Date: 20141212
  Serious: Yes (Other)
  Sender: FDA-Public Use
  Company Number: PHEH2014US003286

PATIENT
  Age: 38 Year
  Sex: Female

DRUGS (6)
  1. GILENYA (FINGOLIMOD) CAPSULE, 0.5MG [Suspect]
     Indication: MULTIPLE SCLEROSIS
     Route: 048
  2. SIMVASTATIN (SIMVASTATIN) [Concomitant]
  3. CYMBALTA [Concomitant]
  4. NIACIN (NICOTINIC ACID) [Concomitant]
  5. VITAMIN D3 (COLECALCIFEROL) [Concomitant]
  6. VALACYCLOVIR (VALACICLOVIR HYDROCHLORIDE) [Concomitant]

REACTIONS (2)
  - Erythema [None]
  - Skin ulcer [None]
